FAERS Safety Report 16040149 (Version 2)
Quarter: 2019Q2

REPORT INFORMATION
  Report Type: Spontaneous
  Country: US (occurrence: US)
  Receive Date: 20190306
  Receipt Date: 20190509
  Transmission Date: 20190711
  Serious: Yes (Other)
  Sender: FDA-Public Use
  Company Number: US-BIOGEN-2019BI00704550

PATIENT
  Age: 63 Year
  Sex: Female

DRUGS (1)
  1. AVONEX [Suspect]
     Active Substance: INTERFERON BETA-1A
     Indication: MULTIPLE SCLEROSIS
     Route: 065
     Dates: start: 20141009

REACTIONS (1)
  - Myocardial infarction [Unknown]

NARRATIVE: CASE EVENT DATE: 201803
